FAERS Safety Report 4659088-5 (Version None)
Quarter: 2005Q2

REPORT INFORMATION
  Report Type: 
  Country: None (occurrence: None)
  Receive Date: 20050509
  Receipt Date: 20050425
  Transmission Date: 20051028
  Serious: No
  Sender: FDA-Public Use
  Company Number: 2005CG00822

PATIENT
  Age: 44 Year
  Sex: Female

DRUGS (10)
  1. IRESSA [Suspect]
     Indication: LUNG ADENOCARCINOMA STAGE III
     Dosage: 250 MG QD PO
     Route: 048
     Dates: start: 20050304, end: 20050420
  2. NOCTAMID [Concomitant]
  3. TRISEQUENS [Concomitant]
  4. MODANE [Concomitant]
  5. ORELOX [Concomitant]
  6. EUPHON [Concomitant]
  7. CIBLOR [Concomitant]
  8. DAFALGAN [Concomitant]
  9. CISPLATIN [Concomitant]
  10. NAVELBINE [Concomitant]

REACTIONS (4)
  - INTERSTITIAL LUNG DISEASE [None]
  - LUNG ADENOCARCINOMA STAGE III [None]
  - NEOPLASM PROGRESSION [None]
  - PULMONARY RADIATION INJURY [None]
